FAERS Safety Report 5827702-4 (Version None)
Quarter: 2008Q3

REPORT INFORMATION
  Report Type: 
  Country: None (occurrence: None)
  Receive Date: 20080728
  Receipt Date: 20080714
  Transmission Date: 20090109
  Serious: Yes (Other)
  Sender: FDA-Public Use
  Company Number: 100#08#2008-03712

PATIENT
  Age: 76 Year
  Sex: Female

DRUGS (4)
  1. METHOTREXATE [Suspect]
     Indication: BREAST CANCER METASTATIC
  2. FLUOROURACIL [Suspect]
     Indication: BREAST CANCER METASTATIC
  3. CYCLOPHOSPHAMIDE (CYCLOPHOSPHAMIDE)` [Suspect]
     Indication: BREAST CANCER METASTATIC
  4. VINORELBINE TARTRATE [Suspect]
     Indication: BREAST CANCER METASTATIC

REACTIONS (3)
  - DERMO-HYPODERMITIS [None]
  - INFUSION RELATED REACTION [None]
  - LIPODYSTROPHY ACQUIRED [None]
